FAERS Safety Report 5456107-3 (Version None)
Quarter: 2007Q3

REPORT INFORMATION
  Report Type: 
  Country: None (occurrence: None)
  Receive Date: 20070918
  Receipt Date: 20070228
  Transmission Date: 20080115
  Serious: No
  Sender: FDA-Public Use
  Company Number: US-ASTRAZENECA-2006UW22892

PATIENT
  Age: 48 Year
  Sex: Male
  Weight: 131.8 kg

DRUGS (3)
  1. SEROQUEL [Suspect]
     Indication: BIPOLAR DISORDER
     Dosage: 25-400 MG PO
     Dates: start: 20040801
  2. SEROQUEL [Suspect]
     Indication: POST-TRAUMATIC STRESS DISORDER
     Dosage: 25-400 MG PO
     Dates: start: 20040801
  3. TRIZADONE [Concomitant]

REACTIONS (2)
  - DIABETES MELLITUS [None]
  - NEPHROLITHIASIS [None]
